FAERS Safety Report 10399047 (Version 3)
Quarter: 2015Q1

REPORT INFORMATION
  Report Type: Other
  Country: GB (occurrence: GB)
  Receive Date: 20140821
  Receipt Date: 20150308
  Transmission Date: 20150720
  Serious: Yes (Other)
  Sender: FDA-Public Use
  Company Number: GB-MYLAN-2014M1001185

PATIENT

DRUGS (11)
  1. HYDROXYCHLOROQUINE [Concomitant]
     Active Substance: HYDROXYCHLOROQUINE
     Dosage: 400 MG, UNK
  2. NORMACOL PLUS [Concomitant]
     Dosage: 7 G, UNK
  3. FLUTICASONE [Concomitant]
     Active Substance: FLUTICASONE\FLUTICASONE PROPIONATE
     Dosage: 100 ?G, UNK
  4. SALBUTAMOL [Concomitant]
     Active Substance: ALBUTEROL
     Dosage: 200 ?G, UNK
  5. LANSOPRAZOLE. [Suspect]
     Active Substance: LANSOPRAZOLE
     Indication: GASTROOESOPHAGEAL REFLUX DISEASE
     Dosage: 30 MG, QD
     Route: 048
     Dates: start: 20140224, end: 20140719
  6. FLUTICASONE PROPIONATE. [Concomitant]
     Active Substance: FLUTICASONE PROPIONATE
     Dosage: 0.05 %
  7. ISOTRETINOIN [Concomitant]
     Active Substance: ISOTRETINOIN
     Dosage: 0.05 %, UNK
  8. PREDNISOLONE. [Concomitant]
     Active Substance: PREDNISOLONE
     Dosage: 40 MG, UNK
  9. DESOGESTREL [Concomitant]
     Active Substance: DESOGESTREL
     Dosage: 75 ?G, UNK
  10. BETNOVATE [Concomitant]
     Active Substance: BETAMETHASONE
     Dosage: 0.1 %, UNK
  11. OESTROGEN [Concomitant]
     Dosage: 625 ?G, UNK

REACTIONS (6)
  - Photosensitivity reaction [Unknown]
  - Erythema [Unknown]
  - Subacute cutaneous lupus erythematosus [Recovering/Resolving]
  - Condition aggravated [Recovering/Resolving]
  - Skin lesion [Unknown]
  - Pruritus [Unknown]

NARRATIVE: CASE EVENT DATE: 20140317
